FAERS Safety Report 4306451-8 (Version None)
Quarter: 2004Q1

REPORT INFORMATION
  Report Type: 
  Country: None (occurrence: None)
  Receive Date: 20040225
  Receipt Date: 20030731
  Transmission Date: 20041129
  Serious: Yes (Hospitalization)
  Sender: FDA-Public Use
  Company Number: US-BRISTOL-MYERS SQUIBB COMPANY-12342374

PATIENT
  Age: 90 Year
  Sex: Female

DRUGS (1)
  1. EXCEDRIN [Suspect]

REACTIONS (1)
  - HAEMORRHAGE [None]
